FAERS Safety Report 4531902-3 (Version None)
Quarter: 2004Q4

REPORT INFORMATION
  Report Type: 
  Country: None (occurrence: None)
  Receive Date: 20041216
  Receipt Date: 20041203
  Transmission Date: 20050328
  Serious: Yes (Other)
  Sender: FDA-Public Use
  Company Number: 2004108089

PATIENT
  Age: 74 Year
  Sex: Female
  Weight: 61.2356 kg

DRUGS (1)
  1. CELEBREX [Suspect]
     Indication: ARTHRITIS
     Dosage: ORAL
     Route: 048
     Dates: start: 20040601

REACTIONS (1)
  - TRIPLE VESSEL BYPASS GRAFT [None]
